FAERS Safety Report 8300728-7 (Version None)
Quarter: 2012Q2

REPORT INFORMATION
  Report Type: 
  Country: None (occurrence: None)
  Receive Date: 20120417
  Receipt Date: 20120406
  Transmission Date: 20120825
  Serious: Yes (Disabling, Other)
  Sender: FDA-Public Use
  Company Number: ACO_30033_2012

PATIENT
  Age: 65 Year
  Sex: Female

DRUGS (2)
  1. AMPYRA [Suspect]
     Indication: GAIT DISTURBANCE
     Dosage: ORAL
     Dates: start: 20111101
  2. AVONEX [Concomitant]

REACTIONS (1)
  - ABASIA [None]
